FAERS Safety Report 5362965-3 (Version None)
Quarter: 2007Q2

REPORT INFORMATION
  Report Type: 
  Country: None (occurrence: None)
  Receive Date: 20070615
  Receipt Date: 20070530
  Transmission Date: 20071010
  Serious: Yes (Life-Threatening, Hospitalization)
  Sender: FDA-Public Use
  Company Number: DSA_30001_2007

PATIENT
  Sex: Female

DRUGS (3)
  1. TAVOR /00273201/ (TAVOR) [Suspect]
     Dosage: ORAL
     Route: 048
     Dates: start: 20070530, end: 20070530
  2. OLANZAPINE [Suspect]
     Dosage: ORAL
     Route: 048
     Dates: start: 20070530, end: 20070530
  3. ETHANOL (ALCOHOL) [Suspect]
     Dosage: ORAL
     Route: 048
     Dates: start: 20070530, end: 20070530

REACTIONS (2)
  - MULTIPLE DRUG OVERDOSE INTENTIONAL [None]
  - SUICIDE ATTEMPT [None]
